FAERS Safety Report 9631453 (Version 1)
Quarter: 2013Q4

REPORT INFORMATION
  Report Type: Report from Study
  Country: CA (occurrence: CA)
  Receive Date: 20131018
  Receipt Date: 20131018
  Transmission Date: 20140711
  Serious: Yes (Other)
  Sender: FDA-Public Use
  Company Number: CA-JNJFOC-20131009156

PATIENT
  Age: 65 Year
  Sex: Female
  Weight: 95 kg

DRUGS (7)
  1. REMICADE [Suspect]
     Indication: CROHN^S DISEASE
     Route: 042
     Dates: start: 20130319
  2. HYDROCHLOROTHIAZIDE [Concomitant]
     Route: 048
  3. DIOVAN [Concomitant]
     Route: 065
  4. RALOXIFENE [Concomitant]
     Route: 065
  5. PANTOLOC [Concomitant]
     Route: 065
  6. PENTASA [Concomitant]
     Route: 065
  7. TRAMACET [Concomitant]
     Route: 065

REACTIONS (1)
  - Arthritis [Not Recovered/Not Resolved]
